FAERS Safety Report 12263142 (Version 1)
Quarter: 2016Q2

REPORT INFORMATION
  Report Type: Spontaneous
  Country: SE (occurrence: SE)
  Receive Date: 20160413
  Receipt Date: 20160413
  Transmission Date: 20160815
  Serious: Yes (Disabling)
  Sender: FDA-Public Use
  Company Number: SE-009507513-1604SWE004909

PATIENT
  Age: 59 Year
  Sex: Male

DRUGS (1)
  1. SIMVASTATIN. [Suspect]
     Active Substance: SIMVASTATIN
     Dosage: UNK
     Route: 048

REACTIONS (4)
  - Dizziness [Not Recovered/Not Resolved]
  - Sudden hearing loss [Not Recovered/Not Resolved]
  - Balance disorder [Not Recovered/Not Resolved]
  - Tinnitus [Not Recovered/Not Resolved]
